FAERS Safety Report 19451659 (Version 1)
Quarter: 2021Q2

REPORT INFORMATION
  Report Type: Spontaneous
  Country: US (occurrence: US)
  Receive Date: 20210623
  Receipt Date: 20210623
  Transmission Date: 20210717
  Serious: No
  Sender: FDA-Public Use
  Company Number: US-AMGEN-USASP2021090939

PATIENT
  Age: 74 Year
  Sex: Female

DRUGS (1)
  1. PROLIA [Suspect]
     Active Substance: DENOSUMAB
     Indication: OSTEOPOROSIS POSTMENOPAUSAL
     Dosage: 60 MILLIGRAM, Q6MO
     Route: 065
     Dates: end: 20201112

REACTIONS (7)
  - Arthralgia [Unknown]
  - Blood cholesterol increased [Unknown]
  - Adverse drug reaction [Unknown]
  - Myalgia [Unknown]
  - Joint stiffness [Recovering/Resolving]
  - Gait disturbance [Unknown]
  - Hypoacusis [Unknown]

NARRATIVE: CASE EVENT DATE: 2021
